FAERS Safety Report 13227450 (Version 1)
Quarter: 2017Q1

REPORT INFORMATION
  Report Type: Spontaneous
  Country: US (occurrence: US)
  Receive Date: 20170213
  Receipt Date: 20170213
  Transmission Date: 20170428
  Serious: Yes (Other)
  Sender: FDA-Public Use
  Company Number: US-ARALEZ PHARMACEUTICALS R+D INC.-ARA-TP-US-2017-04

PATIENT
  Sex: Female
  Weight: 66.74 kg

DRUGS (18)
  1. OMEPRAZOLE. [Suspect]
     Active Substance: OMEPRAZOLE
  2. SLIDING SCALE INSULIN HUMALOG [Concomitant]
     Route: 058
  3. NATEGLINIDE. [Concomitant]
     Active Substance: NATEGLINIDE
     Route: 048
  4. VITAMIN D [Concomitant]
     Active Substance: CHOLECALCIFEROL
     Indication: NUTRITIONAL SUPPLEMENTATION
     Route: 048
  5. OMEGA 3 FATTY FISH OIL [Concomitant]
     Indication: NUTRITIONAL SUPPLEMENTATION
  6. LANTUS [Concomitant]
     Active Substance: INSULIN GLARGINE
     Route: 058
  7. PROBIOTIC [Concomitant]
     Active Substance: PROBIOTICS NOS
     Route: 048
  8. FLONASE [Concomitant]
     Active Substance: FLUTICASONE PROPIONATE
  9. CRESTOR [Suspect]
     Active Substance: ROSUVASTATIN CALCIUM
     Indication: BLOOD CHOLESTEROL
     Route: 048
  10. VITAMIN C [Concomitant]
     Active Substance: ASCORBIC ACID
     Indication: NUTRITIONAL SUPPLEMENTATION
     Route: 048
  11. TRAMADOL. [Concomitant]
     Active Substance: TRAMADOL
     Indication: PAIN
     Route: 048
  12. TOPROL XL [Suspect]
     Active Substance: METOPROLOL SUCCINATE
     Indication: PRODUCT USED FOR UNKNOWN INDICATION
     Route: 048
  13. IRON [Concomitant]
     Active Substance: IRON
     Indication: NUTRITIONAL SUPPLEMENTATION
     Route: 048
  14. LEVOTHYROXINE. [Concomitant]
     Active Substance: LEVOTHYROXINE
     Route: 048
  15. TYLENOL [Concomitant]
     Active Substance: ACETAMINOPHEN
     Route: 048
  16. BABY ASPIRIN [Concomitant]
     Active Substance: ASPIRIN
     Route: 048
  17. COMBIGAN [Concomitant]
     Active Substance: BRIMONIDINE TARTRATE\TIMOLOL MALEATE
  18. MULTIVITAMIN AND MINERALS [Concomitant]
     Active Substance: MINERALS\VITAMINS
     Indication: NUTRITIONAL SUPPLEMENTATION
     Route: 048

REACTIONS (17)
  - Spinal pain [None]
  - Bone pain [Not Recovered/Not Resolved]
  - Breast cancer [Recovered/Resolved]
  - Cardiac failure [Not Recovered/Not Resolved]
  - Coronary artery disease [Not Recovered/Not Resolved]
  - Pain [Not Recovered/Not Resolved]
  - Chronic kidney disease [Unknown]
  - Gastrointestinal disorder [Unknown]
  - Arthralgia [None]
  - Glaucoma [Not Recovered/Not Resolved]
  - Body height decreased [Not Recovered/Not Resolved]
  - Pain in extremity [None]
  - Osteoporosis [Not Recovered/Not Resolved]
  - Urinary tract infection [Not Recovered/Not Resolved]
  - Memory impairment [Not Recovered/Not Resolved]
  - Gait disturbance [Not Recovered/Not Resolved]
  - Anaemia [Unknown]

NARRATIVE: CASE EVENT DATE: 2009
